FAERS Safety Report 5784597-5 (Version None)
Quarter: 2008Q2

REPORT INFORMATION
  Report Type: 
  Country: None (occurrence: None)
  Receive Date: 20080624
  Receipt Date: 20070510
  Transmission Date: 20081010
  Serious: No
  Sender: FDA-Public Use
  Company Number: US-ASTRAZENECA-2007UW11187

PATIENT
  Age: 13 Year
  Sex: Female
  Weight: 52.2 kg

DRUGS (5)
  1. PULMICORT RESPULES [Suspect]
     Indication: ASTHMA
     Route: 055
     Dates: start: 20070401
  2. XOPENEX [Concomitant]
  3. SINGULAIR [Concomitant]
  4. ZYRTEC [Concomitant]
  5. PREDNISONE TAB [Concomitant]

REACTIONS (3)
  - COLD SWEAT [None]
  - FEELING HOT [None]
  - HOT FLUSH [None]
